FAERS Safety Report 24089622 (Version 1)
Quarter: 2024Q3

REPORT INFORMATION
  Report Type: Spontaneous
  Country: PT (occurrence: PT)
  Receive Date: 20240715
  Receipt Date: 20240715
  Transmission Date: 20241017
  Serious: Yes (Life-Threatening, Hospitalization)
  Sender: MACLEODS
  Company Number: PT-MLMSERVICE-20240626-PI112609-00057-1

PATIENT

DRUGS (17)
  1. ATORVASTATIN [Suspect]
     Active Substance: ATORVASTATIN
     Indication: Product used for unknown indication
     Route: 065
  2. QUETIAPINE [Suspect]
     Active Substance: QUETIAPINE
     Indication: Product used for unknown indication
     Route: 065
  3. FUROSEMIDE [Suspect]
     Active Substance: FUROSEMIDE
     Indication: Weight decreased
     Dosage: COMPOUNDED TABLET
     Route: 048
  4. TRAZODONE [Suspect]
     Active Substance: TRAZODONE HYDROCHLORIDE
     Indication: Product used for unknown indication
     Route: 065
  5. PHENOLPHTHALEIN [Suspect]
     Active Substance: PHENOLPHTHALEIN
     Indication: Weight decreased
     Dosage: COMPOUNDED TABLET, INGESTION
     Route: 048
  6. HERBALS [Suspect]
     Active Substance: HERBALS
     Indication: Weight decreased
     Dosage: COMPOUNDED TABLET, INGESTION
     Route: 048
  7. LORAZEPAM [Suspect]
     Active Substance: LORAZEPAM
     Indication: Product used for unknown indication
     Dosage: 0.137 MG
     Route: 065
  8. BUPROPION [Suspect]
     Active Substance: BUPROPION
     Indication: Weight decreased
     Dosage: COMPOUNDED TABLET
     Route: 048
  9. CHLORDIAZEPOXIDE [Suspect]
     Active Substance: CHLORDIAZEPOXIDE
     Indication: Weight decreased
     Dosage: COMPOUNDED TABLET, INGESTION
     Route: 048
  10. HERBALS [Suspect]
     Active Substance: HERBALS
     Indication: Weight decreased
     Dosage: COMPOUNDED TABLET
     Route: 048
  11. AMLODIPINE [Concomitant]
     Active Substance: AMLODIPINE BESYLATE
     Indication: Product used for unknown indication
     Route: 065
  12. METFORMIN [Concomitant]
     Active Substance: METFORMIN HYDROCHLORIDE
     Indication: Weight decreased
     Route: 048
  13. METFORMIN [Concomitant]
     Active Substance: METFORMIN HYDROCHLORIDE
     Route: 065
  14. CANDESARTAN [Concomitant]
     Active Substance: CANDESARTAN
     Indication: Product used for unknown indication
     Route: 065
  15. LEVOTHYROXINE [Concomitant]
     Active Substance: LEVOTHYROXINE\LEVOTHYROXINE SODIUM
     Indication: Product used for unknown indication
     Dosage: 0.137 MG
     Route: 065
  16. ASPIRIN [Concomitant]
     Active Substance: ASPIRIN
     Indication: Product used for unknown indication
     Route: 065
  17. LIRAGLUTIDE [Concomitant]
     Active Substance: LIRAGLUTIDE
     Indication: Product used for unknown indication
     Route: 065

REACTIONS (5)
  - Rhabdomyolysis [Recovering/Resolving]
  - Encephalopathy [Recovered/Resolved]
  - Acute kidney injury [Recovering/Resolving]
  - Hypovolaemia [Recovered/Resolved]
  - Drug interaction [Recovered/Resolved]
